FAERS Safety Report 4298416-X (Version None)
Quarter: 2004Q1

REPORT INFORMATION
  Report Type: 
  Country: None (occurrence: None)
  Receive Date: 20040218
  Receipt Date: 20030627
  Transmission Date: 20041129
  Serious: Yes (Other)
  Sender: FDA-Public Use
  Company Number: US-BRISTOL-MYERS SQUIBB COMPANY-12313904

PATIENT
  Sex: Female

DRUGS (12)
  1. STADOL [Suspect]
     Indication: HEADACHE
     Route: 045
  2. MODURETIC 5-50 [Concomitant]
  3. INDERAL [Concomitant]
  4. CAFERGOT [Concomitant]
  5. SOMA [Concomitant]
  6. BUSPAR [Concomitant]
  7. ELAVIL [Concomitant]
  8. INDOCIN [Concomitant]
  9. IMITREX [Concomitant]
  10. MEDROL [Concomitant]
  11. METHYLPREDNISOLONE [Concomitant]
  12. DESYREL [Concomitant]
     Dosage: AT BEDTIME

REACTIONS (2)
  - DEPENDENCE [None]
  - NAUSEA [None]
